FAERS Safety Report 25362504 (Version 1)
Quarter: 2025Q2

REPORT INFORMATION
  Report Type: Spontaneous
  Country: SI (occurrence: SI)
  Receive Date: 20250527
  Receipt Date: 20250527
  Transmission Date: 20250716
  Serious: Yes (Other)
  Sender: BAYER HEALTHCARE PHARMACEUTICALS INC.
  Company Number: SI-BAYER-2025A068289

PATIENT
  Weight: 108 kg

DRUGS (9)
  1. KERENDIA [Suspect]
     Active Substance: FINERENONE
  2. LOSARTAN POTASSIUM [Concomitant]
     Active Substance: LOSARTAN POTASSIUM
  3. FEBUXOSTAT [Concomitant]
     Active Substance: FEBUXOSTAT
  4. TRULICITY [Concomitant]
     Active Substance: DULAGLUTIDE
  5. FENOFIBRATE\SIMVASTATIN [Concomitant]
     Active Substance: FENOFIBRATE\SIMVASTATIN
  6. ACETAMINOPHEN [Concomitant]
     Active Substance: ACETAMINOPHEN
  7. Analgin [Concomitant]
  8. LACIDIPINE [Concomitant]
     Active Substance: LACIDIPINE
  9. JARDIANCE [Concomitant]
     Active Substance: EMPAGLIFLOZIN

REACTIONS (1)
  - Blood pressure systolic increased [None]
